FAERS Safety Report 13251947 (Version 2)
Quarter: 2017Q1

REPORT INFORMATION
  Report Type: Spontaneous
  Country: AU (occurrence: AU)
  Receive Date: 20170220
  Receipt Date: 20170221
  Transmission Date: 20170428
  Serious: Yes (Other)
  Sender: FDA-Public Use
  Company Number: AU-B.I. PHARMACEUTICALS,INC./RIDGEFIELD-2016-BI-074136

PATIENT
  Sex: Female

DRUGS (2)
  1. GILOTRIF [Suspect]
     Active Substance: AFATINIB
     Indication: LUNG ADENOCARCINOMA METASTATIC
     Route: 048
     Dates: start: 20161111
  2. GILOTRIF [Suspect]
     Active Substance: AFATINIB
     Indication: HER2 GENE AMPLIFICATION
     Route: 048

REACTIONS (13)
  - Diarrhoea [Unknown]
  - Mouth ulceration [Unknown]
  - Vomiting [Unknown]
  - Drug intolerance [Unknown]
  - Malignant neoplasm progression [Unknown]
  - Fatigue [Unknown]
  - Nausea [Unknown]
  - Rash [Unknown]
  - Gastrointestinal disorder [Unknown]
  - Decreased appetite [Unknown]
  - Respiratory tract haemorrhage [Unknown]
  - Anxiety [Unknown]
  - Off label use [Unknown]
